FAERS Safety Report 5426424-1 (Version None)
Quarter: 2007Q3

REPORT INFORMATION
  Report Type: 
  Country: None (occurrence: None)
  Receive Date: 20070827
  Receipt Date: 20070815
  Transmission Date: 20080115
  Serious: Yes (Death, Hospitalization)
  Sender: FDA-Public Use
  Company Number: CA-PFIZER INC-2007003091

PATIENT
  Sex: Female

DRUGS (10)
  1. SU-011,248 [Suspect]
     Indication: LUNG NEOPLASM MALIGNANT
     Route: 048
     Dates: start: 20061221, end: 20070107
  2. CODEINE SUL TAB [Concomitant]
  3. OXYGEN [Concomitant]
     Dates: start: 20060921
  4. FRAXIPARINE [Concomitant]
     Route: 058
     Dates: start: 20061010, end: 20070105
  5. NEURONTIN [Concomitant]
     Dates: start: 20061106
  6. MAGNESIUM-ROUGIER [Concomitant]
     Dates: start: 20061214
  7. FLOVENT [Concomitant]
     Dates: start: 20061220
  8. VENTOLIN [Concomitant]
     Dates: start: 20060801
  9. GRAVOL TAB [Concomitant]
     Dates: start: 20060921
  10. REMERON [Concomitant]
     Dates: start: 20061220

REACTIONS (4)
  - ALANINE AMINOTRANSFERASE INCREASED [None]
  - HAEMOGLOBIN DECREASED [None]
  - PLATELET COUNT DECREASED [None]
  - PULMONARY EMBOLISM [None]
